FAERS Safety Report 4648006-1 (Version None)
Quarter: 2005Q2

REPORT INFORMATION
  Report Type: 
  Country: None (occurrence: None)
  Receive Date: 20050331
  Receipt Date: 20050114
  Transmission Date: 20051028
  Serious: No
  Sender: FDA-Public Use
  Company Number: 05P-163-0286781-00

PATIENT
  Age: 68 Year
  Sex: Male
  Weight: 100 kg

DRUGS (16)
  1. HUMIRA [Suspect]
     Indication: RHEUMATOID ARTHRITIS
     Dosage: 40 MG, 1 IN 2 WK, SUBCUTANEOUS
     Route: 058
     Dates: start: 20041101
  2. ROSIGLITAZONE MALEATE [Concomitant]
  3. BENECAR [Concomitant]
  4. AMLODIPINE BESYLATE [Concomitant]
  5. METOPROLOL [Concomitant]
  6. ATORVASTATIN [Concomitant]
  7. FOLIC ACID [Concomitant]
  8. IRON [Concomitant]
  9. PREDNISONE TAB [Concomitant]
  10. ACETAMINOPHEN W/ CODEINE [Concomitant]
  11. SULFASALAZINE [Concomitant]
  12. GABAPENTIN [Concomitant]
  13. ALENDRONATE SODIUM [Concomitant]
  14. SINGULAIR [Concomitant]
  15. FUROSEMIDE [Concomitant]
  16. ASPIRIN [Concomitant]

REACTIONS (1)
  - WEIGHT INCREASED [None]
